FAERS Safety Report 22611484 (Version 1)
Quarter: 2023Q2

REPORT INFORMATION
  Report Type: Spontaneous
  Country: DE (occurrence: DE)
  Receive Date: 20230616
  Receipt Date: 20230616
  Transmission Date: 20230721
  Serious: Yes (Hospitalization, Other)
  Sender: FDA-Public Use
  Company Number: DE-002147023-NVSC2023DE075960

PATIENT
  Sex: Female
  Weight: 163 kg

DRUGS (4)
  1. ZOLEDRONIC ACID [Suspect]
     Active Substance: ZOLEDRONIC ACID
     Indication: Breast cancer metastatic
     Dosage: UNK UNK, QMO (FROM APR 2023)
     Route: 065
  2. KISQALI [Suspect]
     Active Substance: RIBOCICLIB
     Indication: Breast cancer metastatic
     Dosage: 3 DOSAGE FORM, QD (FOR 3 WEEKS WITH ONE WEEK BREAK, STOPPED IN 2023)
     Route: 065
     Dates: start: 20230130
  3. KISQALI [Suspect]
     Active Substance: RIBOCICLIB
     Dosage: 2 DOSAGE FORM, QD (STARTED IN 2023)
     Route: 065
  4. LETROZOLE [Suspect]
     Active Substance: LETROZOLE
     Indication: Breast cancer metastatic
     Dosage: 1 DOSAGE FORM, QD (FOR 3 WEEKS WITH ONE WEEK BREAK)
     Route: 065
     Dates: start: 20230109

REACTIONS (9)
  - Pericardial effusion [Recovering/Resolving]
  - Cerebral infarction [Recovering/Resolving]
  - Cerebrovascular accident [Recovering/Resolving]
  - Pleural effusion [Recovering/Resolving]
  - Cerebral artery embolism [Recovering/Resolving]
  - Metastases to bone [None]
  - Anaemia [None]
  - Nausea [None]
  - Decreased appetite [None]

NARRATIVE: CASE EVENT DATE: 20230216
